FAERS Safety Report 21179357 (Version 2)
Quarter: 2022Q3

REPORT INFORMATION
  Report Type: Spontaneous
  Country: IN (occurrence: IN)
  Receive Date: 20220805
  Receipt Date: 20220812
  Transmission Date: 20221026
  Serious: Yes (Other)
  Sender: FDA-Public Use
  Company Number: IN-PFIZER INC-PV202200036468

PATIENT
  Age: 46 Year
  Sex: Female

DRUGS (4)
  1. PALBOCICLIB [Suspect]
     Active Substance: PALBOCICLIB
     Dosage: 125 MG, 1X/DAY (OD, 2 CYCLES)
     Route: 048
     Dates: start: 20211101
  2. PALBOCICLIB [Suspect]
     Active Substance: PALBOCICLIB
     Dosage: UNK
     Dates: start: 20220101
  3. LETROZOLE [Suspect]
     Active Substance: LETROZOLE
     Dosage: UNK
  4. ZOLEDRONIC ACID [Suspect]
     Active Substance: ZOLEDRONIC ACID
     Dosage: 4 MG
     Dates: start: 20220129

REACTIONS (1)
  - Modified radical mastectomy [Unknown]

NARRATIVE: CASE EVENT DATE: 20220226
